FAERS Safety Report 6011396-1 (Version None)
Quarter: 2008Q4

REPORT INFORMATION
  Report Type: 
  Country: None (occurrence: None)
  Receive Date: 20081218
  Receipt Date: 20081208
  Transmission Date: 20090506
  Serious: Yes (Life-Threatening, Hospitalization)
  Sender: FDA-Public Use
  Company Number: JP-JNJFOC-20081201570

PATIENT
  Sex: Male
  Weight: 59 kg

DRUGS (16)
  1. REMICADE [Suspect]
     Route: 042
  2. REMICADE [Suspect]
     Route: 042
  3. REMICADE [Suspect]
     Route: 042
  4. REMICADE [Suspect]
     Route: 042
  5. REMICADE [Suspect]
     Route: 042
  6. REMICADE [Suspect]
     Route: 042
  7. REMICADE [Suspect]
     Indication: RHEUMATOID ARTHRITIS
     Route: 042
  8. MOVER [Suspect]
     Indication: DRUG USE FOR UNKNOWN INDICATION
     Route: 048
  9. RHEUMATREX [Suspect]
     Route: 048
  10. RHEUMATREX [Suspect]
     Indication: RHEUMATOID ARTHRITIS
     Route: 048
  11. AZULFIDINE [Suspect]
     Indication: DRUG USE FOR UNKNOWN INDICATION
     Route: 048
  12. PREDONINE [Suspect]
     Indication: RHEUMATOID ARTHRITIS
     Route: 048
  13. FOLIAMIN [Concomitant]
     Route: 048
  14. ADRENAL HORMONE PREPARATION [Concomitant]
     Indication: RHEUMATOID ARTHRITIS
  15. VOLTAREN [Concomitant]
     Indication: DRUG USE FOR UNKNOWN INDICATION
     Route: 054
  16. VOLTAREN [Concomitant]
     Indication: RHEUMATOID ARTHRITIS
     Route: 048

REACTIONS (2)
  - INFECTIVE ANEURYSM [None]
  - PLEURAL EFFUSION [None]
